FAERS Safety Report 8802002 (Version 1)
Quarter: 2012Q4

REPORT INFORMATION
  Report Type: 
  Country: US (occurrence: US)
  Receive Date: 20120921
  Receipt Date: 20120921
  Transmission Date: 20130627
  Serious: Yes (Hospitalization, Other)
  Sender: FDA-Public Use
  Company Number: US-PFIZER INC-2012230286

PATIENT
  Age: 60 Year
  Sex: Female
  Weight: 70 kg

DRUGS (6)
  1. PREMPRO [Suspect]
     Indication: HOT FLUSH
     Dosage: UNK ,daily
     Route: 048
     Dates: start: 2007
  2. PREMPRO [Suspect]
     Indication: NIGHT SWEATS
  3. MORPHINE [Concomitant]
     Indication: INTERVERTEBRAL DISC PROTRUSION
     Dosage: 10 mg, 2x/day
  4. MORPHINE [Concomitant]
     Indication: NERVE INJURY
  5. HYDROCODONE [Concomitant]
     Indication: INTERVERTEBRAL DISC PROTRUSION
     Dosage: 40 mg, daily
  6. HYDROCODONE [Concomitant]
     Indication: NERVE INJURY

REACTIONS (7)
  - Fall [Unknown]
  - Joint injury [Unknown]
  - Cardiovascular disorder [Unknown]
  - Pain [Unknown]
  - Gait disturbance [Recovering/Resolving]
  - Embolism [Unknown]
  - Insomnia [Unknown]
